FAERS Safety Report 10153654 (Version 1)
Quarter: 2014Q2

REPORT INFORMATION
  Report Type: Spontaneous
  Country: HK (occurrence: HK)
  Receive Date: 20140506
  Receipt Date: 20140506
  Transmission Date: 20141212
  Serious: Yes (Other)
  Sender: FDA-Public Use
  Company Number: HK-AMGEN INC.-HKGSP2014032392

PATIENT
  Sex: Female

DRUGS (1)
  1. ENBREL [Suspect]
     Indication: RHEUMATOID ARTHRITIS
     Dosage: 50 MG, MONTHLY
     Route: 065
     Dates: start: 2012

REACTIONS (3)
  - Hypertension [Unknown]
  - Headache [Unknown]
  - Drug effect incomplete [Unknown]
